FAERS Safety Report 4500920-3 (Version None)
Quarter: 2004Q4

REPORT INFORMATION
  Report Type: 
  Country: None (occurrence: None)
  Receive Date: 20041115
  Receipt Date: 20040722
  Transmission Date: 20050328
  Serious: Yes (Hospitalization)
  Sender: FDA-Public Use
  Company Number: ES-ROCHE-375178

PATIENT
  Age: 46 Year
  Sex: Female

DRUGS (2)
  1. INTERFERON ALFA-2A [Suspect]
     Indication: METASTATIC MALIGNANT MELANOMA
     Dosage: ADMINISTERED ON DAYS 11 AND 18 OF A 28 DAY CYCLE.
     Route: 058
     Dates: start: 20040628
  2. DTIC-DOME [Suspect]
     Indication: METASTATIC MALIGNANT MELANOMA
     Dosage: ADMINISTERED ON DAY 1 OF A 28 DAY CYCLE.
     Route: 042
     Dates: start: 20040618

REACTIONS (1)
  - FEBRILE NEUTROPENIA [None]
